FAERS Safety Report 21856041 (Version 2)
Quarter: 2023Q1

REPORT INFORMATION
  Report Type: Report from Study
  Country: JP (occurrence: JP)
  Receive Date: 20230112
  Receipt Date: 20230120
  Transmission Date: 20230417
  Serious: Yes (Hospitalization)
  Sender: FDA-Public Use
  Company Number: JP-BAYER-2023A001430

PATIENT
  Age: 47 Year
  Sex: Female
  Weight: 48 kg

DRUGS (8)
  1. DAROLUTAMIDE [Suspect]
     Active Substance: DAROLUTAMIDE
     Dosage: DAILY DOSE 1200 MG
     Dates: start: 20221130, end: 20221209
  2. DAROLUTAMIDE [Suspect]
     Active Substance: DAROLUTAMIDE
     Dosage: BID, 1200MG, DAILY
     Dates: start: 20230104, end: 20230104
  3. GOSERELIN [Concomitant]
     Active Substance: GOSERELIN
     Dosage: Q4WK, 3.6MG
     Route: 058
     Dates: start: 20221130, end: 20221130
  4. AMLODIPINE [Concomitant]
     Active Substance: AMLODIPINE BESYLATE
     Indication: Hypertension
     Dosage: 1 DF, QD
     Route: 048
  5. CANDESARTAN [Concomitant]
     Active Substance: CANDESARTAN
     Indication: Hypertension
     Dosage: 1 DF, QD
     Route: 048
  6. FEXOFENADINE HYDROCHLORIDE [Concomitant]
     Active Substance: FEXOFENADINE HYDROCHLORIDE
     Indication: Pruritus
     Dosage: 1 DF, BID
     Route: 048
  7. NEXIUM [Concomitant]
     Active Substance: ESOMEPRAZOLE MAGNESIUM
     Indication: Gastritis prophylaxis
     Dosage: 1 DF, QD
     Route: 048
  8. SODIUM GUALENATE MONOHYDRATE [Concomitant]
     Active Substance: SODIUM GUALENATE MONOHYDRATE
     Indication: Prophylaxis
     Dosage: UNK UNK, PRN

REACTIONS (1)
  - Hypersensitivity [Recovered/Resolved]

NARRATIVE: CASE EVENT DATE: 20230104
